FAERS Safety Report 7608932-8 (Version None)
Quarter: 2011Q3

REPORT INFORMATION
  Report Type: 
  Country: None (occurrence: None)
  Receive Date: 20110714
  Receipt Date: 20110706
  Transmission Date: 20111222
  Serious: Yes (Hospitalization, Other)
  Sender: FDA-Public Use
  Company Number: US-GLAXOSMITHKLINE-A0920088A

PATIENT
  Age: 52 Year
  Sex: Female
  Weight: 103.6 kg

DRUGS (3)
  1. PROMACTA [Suspect]
     Indication: IDIOPATHIC THROMBOCYTOPENIC PURPURA
     Dosage: 50MG PER DAY
     Route: 048
     Dates: start: 20110301, end: 20110404
  2. BLOOD PRESSURE MEDICATION [Concomitant]
  3. ROMIPLOSTIM [Concomitant]
     Indication: IDIOPATHIC THROMBOCYTOPENIC PURPURA
     Dosage: 500MCG WEEKLY

REACTIONS (8)
  - CEREBROVASCULAR ACCIDENT [None]
  - DIZZINESS [None]
  - VISUAL IMPAIRMENT [None]
  - TRANSIENT ISCHAEMIC ATTACK [None]
  - HYPOAESTHESIA [None]
  - EMBOLISM [None]
  - FLUSHING [None]
  - CONVULSION [None]
